FAERS Safety Report 8789693 (Version 1)
Quarter: 2012Q4

REPORT INFORMATION
  Report Type: Spontaneous
  Country: IE (occurrence: None)
  Receive Date: 20120906
  Receipt Date: 20120906
  Transmission Date: 20130627
  Serious: Yes (Disabling)
  Sender: FDA-Public Use
  Company Number: DSM-2012-00915

PATIENT
  Sex: Male

DRUGS (1)
  1. BENETOR [Suspect]
     Indication: HYPERTENSION
     Route: 048

REACTIONS (1)
  - Coeliac disease [None]
